FAERS Safety Report 17456468 (Version 3)
Quarter: 2020Q1

REPORT INFORMATION
  Report Type: Spontaneous
  Country: US (occurrence: US)
  Receive Date: 20200225
  Receipt Date: 20200325
  Transmission Date: 20200409
  Serious: No
  Sender: FDA-Public Use
  Company Number: US-PFIZER INC-2019545516

PATIENT
  Age: 59 Year
  Sex: Female

DRUGS (34)
  1. DOCETAXEL. [Suspect]
     Active Substance: DOCETAXEL
     Indication: BREAST CANCER METASTATIC
     Dosage: UNK UNK, CYCLIC (EVERY THREE WEEKS FOR 6 CYCLES)
     Dates: start: 20160218, end: 20160602
  2. TAXOTERE [Suspect]
     Active Substance: DOCETAXEL
     Dosage: 123.8 MG, SINGLE
     Dates: start: 20160421, end: 20160421
  3. HERCEPTIN [Concomitant]
     Active Substance: TRASTUZUMAB
     Dosage: 366.6 MG, SINGLE
     Dates: start: 20160602, end: 20160602
  4. PERJETA [Concomitant]
     Active Substance: PERTUZUMAB
     Dosage: 420 MG, SINGLE
     Dates: start: 20160421, end: 20160421
  5. PERJETA [Concomitant]
     Active Substance: PERTUZUMAB
     Dosage: 420 MG, SINGLE
     Dates: start: 20160512, end: 20160512
  6. ZARXIO [Concomitant]
     Active Substance: FILGRASTIM-SNDZ
     Dosage: UNK
  7. NEUPOGEN [Concomitant]
     Active Substance: FILGRASTIM
     Dosage: UNK
  8. TAXOTERE [Suspect]
     Active Substance: DOCETAXEL
     Dosage: 123.8 MG, SINGLE
     Dates: start: 20160310, end: 20160310
  9. PARAPLATIN [Concomitant]
     Active Substance: CARBOPLATIN
     Indication: BREAST CANCER METASTATIC
     Dosage: 493.8 MG, SINGLE
     Dates: start: 20160218, end: 20160218
  10. HERCEPTIN [Concomitant]
     Active Substance: TRASTUZUMAB
     Dosage: 366.6 MG, SINGLE
     Dates: start: 20160512, end: 20160512
  11. LIPITOR [Concomitant]
     Active Substance: ATORVASTATIN CALCIUM
     Dosage: UNK
     Dates: start: 201108
  12. TAXOTERE [Suspect]
     Active Substance: DOCETAXEL
     Indication: BREAST CANCER METASTATIC
     Dosage: 123.8 MG, SINGLE
     Dates: start: 20160218, end: 20160218
  13. TAXOTERE [Suspect]
     Active Substance: DOCETAXEL
     Dosage: 123.8 MG, SINGLE
     Dates: start: 20160512, end: 20160512
  14. PARAPLATIN [Concomitant]
     Active Substance: CARBOPLATIN
     Dosage: 493.8 MG, SINGLE
     Dates: start: 20160331, end: 20160331
  15. PARAPLATIN [Concomitant]
     Active Substance: CARBOPLATIN
     Dosage: 523.2 MG, SINGLE
     Dates: start: 20160512, end: 20160512
  16. DECADRON [Concomitant]
     Active Substance: DEXAMETHASONE
     Dosage: UNK
  17. TAXOTERE [Suspect]
     Active Substance: DOCETAXEL
     Dosage: 123.8 MG, SINGLE
     Dates: start: 20160331, end: 20160331
  18. PARAPLATIN [Concomitant]
     Active Substance: CARBOPLATIN
     Dosage: 567.6 MG, SINGLE
     Dates: start: 20160421, end: 20160421
  19. HERCEPTIN [Concomitant]
     Active Substance: TRASTUZUMAB
     Dosage: UNK
     Dates: start: 20160623, end: 20170216
  20. PERJETA [Concomitant]
     Active Substance: PERTUZUMAB
     Dosage: 420 MG, SINGLE
     Dates: start: 20160310, end: 20160310
  21. PERJETA [Concomitant]
     Active Substance: PERTUZUMAB
     Dosage: 420 MG, SINGLE
     Dates: start: 20160331, end: 20160331
  22. PARAPLATIN [Concomitant]
     Active Substance: CARBOPLATIN
     Dosage: 493.8 MG, SINGLE
     Dates: start: 20160310, end: 20160310
  23. HERCEPTIN [Concomitant]
     Active Substance: TRASTUZUMAB
     Dosage: 366.6 MG, SINGLE
     Dates: start: 20160421, end: 20160421
  24. NEULASTA [Concomitant]
     Active Substance: PEGFILGRASTIM
     Dosage: UNK
  25. EMEND [Concomitant]
     Active Substance: APREPITANT
     Dosage: UNK
  26. TAXOTERE [Suspect]
     Active Substance: DOCETAXEL
     Dosage: 99 MG, SINGLE
     Dates: start: 20160602, end: 20160602
  27. HERCEPTIN [Concomitant]
     Active Substance: TRASTUZUMAB
     Indication: BREAST CANCER METASTATIC
     Dosage: 488.8 MG, SINGLE
     Dates: start: 20160218, end: 20160218
  28. PERJETA [Concomitant]
     Active Substance: PERTUZUMAB
     Indication: BREAST CANCER METASTATIC
     Dosage: 840 MG, SINGLE
     Dates: start: 20160218, end: 20160218
  29. PERJETA [Concomitant]
     Active Substance: PERTUZUMAB
     Dosage: 420 MG, SINGLE
     Dates: start: 20160602, end: 20160602
  30. PARAPLATIN [Concomitant]
     Active Substance: CARBOPLATIN
     Dosage: 523.2 MG, SINGLE
     Dates: start: 20160602, end: 20160602
  31. HERCEPTIN [Concomitant]
     Active Substance: TRASTUZUMAB
     Dosage: 366.6 MG, SINGLE
     Dates: start: 20160310, end: 20160310
  32. HERCEPTIN [Concomitant]
     Active Substance: TRASTUZUMAB
     Dosage: 366.6 MG, SINGLE
     Dates: start: 20160331, end: 20160331
  33. ZOFRAN [Concomitant]
     Active Substance: ONDANSETRON HYDROCHLORIDE
     Dosage: UNK
  34. NAPROXEN. [Concomitant]
     Active Substance: NAPROXEN
     Dosage: UNK

REACTIONS (5)
  - Madarosis [Not Recovered/Not Resolved]
  - Hair disorder [Not Recovered/Not Resolved]
  - Hair colour changes [Not Recovered/Not Resolved]
  - Hair texture abnormal [Not Recovered/Not Resolved]
  - Alopecia [Not Recovered/Not Resolved]

NARRATIVE: CASE EVENT DATE: 20160308
